FAERS Safety Report 4906286-9 (Version None)
Quarter: 2006Q1

REPORT INFORMATION
  Report Type: 
  Country: None (occurrence: None)
  Receive Date: 20060209
  Receipt Date: 20060202
  Transmission Date: 20060701
  Serious: Yes (Other)
  Sender: FDA-Public Use
  Company Number: US-AVENTIS-200611096GDDC

PATIENT
  Age: 70 Year
  Sex: Female

DRUGS (3)
  1. TAXOTERE [Suspect]
     Indication: BREAST CANCER
     Route: 042
     Dates: start: 20040820, end: 20041029
  2. EPIRUBICIN [Suspect]
     Indication: BREAST CANCER
     Route: 042
     Dates: start: 20040820, end: 20041029
  3. CYTOXAN [Suspect]
     Indication: BREAST CANCER
     Route: 042
     Dates: start: 20040820, end: 20041029

REACTIONS (5)
  - AUTOIMMUNE DISORDER [None]
  - CHORIORETINAL ATROPHY [None]
  - PARANEOPLASTIC SYNDROME [None]
  - RETINAL DEGENERATION [None]
  - VISUAL ACUITY REDUCED [None]
